FAERS Safety Report 8587355-1 (Version None)
Quarter: 2012Q3

REPORT INFORMATION
  Report Type: 
  Country: None (occurrence: None)
  Receive Date: 20120810
  Receipt Date: 20120404
  Transmission Date: 20120928
  Serious: No
  Sender: FDA-Public Use
  Company Number: US-ASTRAZENECA-2012SE22835

PATIENT
  Age: 56 Year
  Sex: Female

DRUGS (5)
  1. ALLEGRA [Concomitant]
  2. ARIMIDEX [Suspect]
     Indication: BREAST CANCER
     Route: 048
     Dates: start: 20110801
  3. DOXAPIN [Concomitant]
  4. TOPROL-XL [Suspect]
     Route: 048
  5. LIPITOR [Concomitant]

REACTIONS (5)
  - HOT FLUSH [None]
  - HYPERTHYROIDISM [None]
  - ALOPECIA [None]
  - TACHYCARDIA [None]
  - ARTHRALGIA [None]
